FAERS Safety Report 4847583-5 (Version None)
Quarter: 2005Q4

REPORT INFORMATION
  Report Type: 
  Country: None (occurrence: None)
  Receive Date: 20051205
  Receipt Date: 20051130
  Transmission Date: 20060501
  Serious: Yes (Hospitalization)
  Sender: FDA-Public Use
  Company Number: 6017518F

PATIENT
  Age: 63 Year
  Sex: Male

DRUGS (5)
  1. NIASPAN [Suspect]
     Indication: HYPERLIPIDAEMIA
     Dosage: 1000 MG PO
     Route: 048
     Dates: start: 20041201, end: 20050813
  2. ANTIHYPERTENSIVE MEDICATION [Concomitant]
  3. FLECAINIDE ACETATE [Concomitant]
  4. DIOVAN HCT [Concomitant]
  5. FLUVASTATIN SODIUM [Concomitant]

REACTIONS (6)
  - CONTUSION [None]
  - FALL [None]
  - HYPERHIDROSIS [None]
  - HYPOTENSION [None]
  - LOSS OF CONSCIOUSNESS [None]
  - SYNCOPE [None]
